FAERS Safety Report 18460690 (Version 1)
Quarter: 2020Q4

REPORT INFORMATION
  Report Type: Spontaneous
  Country: US (occurrence: US)
  Receive Date: 20201104
  Receipt Date: 20201104
  Transmission Date: 20210114
  Serious: No
  Sender: FDA-Public Use
  Company Number: US-AUROBINDO-AUR-APL-2020-015526

PATIENT
  Age: 73 Year
  Sex: Female

DRUGS (2)
  1. METOPROLOL TARTRATE FILM COATED TABLETS USP 25 MG [Suspect]
     Active Substance: METOPROLOL TARTRATE
     Indication: ATRIAL FIBRILLATION
     Dosage: UNK
     Route: 065
  2. WARFARIN SODIUM. [Suspect]
     Active Substance: WARFARIN SODIUM
     Indication: ATRIAL FIBRILLATION
     Dosage: UNK
     Route: 065

REACTIONS (9)
  - Muscle atrophy [Unknown]
  - Visual impairment [Unknown]
  - Oedema [Unknown]
  - Drug hypersensitivity [Unknown]
  - Dry mouth [Unknown]
  - Feeling abnormal [Unknown]
  - Dry skin [Unknown]
  - Blood blister [Unknown]
  - Pruritus [Unknown]
